FAERS Safety Report 15396153 (Version 3)
Quarter: 2019Q2

REPORT INFORMATION
  Report Type: Spontaneous
  Country: US (occurrence: US)
  Receive Date: 20180918
  Receipt Date: 20190625
  Transmission Date: 20190711
  Serious: Yes (Other)
  Sender: FDA-Public Use
  Company Number: US-009507513-1809USA004646

PATIENT
  Age: 37 Year
  Sex: Male

DRUGS (8)
  1. TERBINAFINE. [Suspect]
     Active Substance: TERBINAFINE
     Indication: ASPERGILLUS INFECTION
     Dosage: UNK
  2. MICAFUNGIN. [Suspect]
     Active Substance: MICAFUNGIN SODIUM
     Indication: ASPERGILLUS INFECTION
     Dosage: UNK
  3. AMPHOTERICIN B. [Suspect]
     Active Substance: AMPHOTERICIN B
     Indication: ASPERGILLUS INFECTION
     Dosage: UNK
  4. INTERFERON ALFA NOS [Suspect]
     Active Substance: INTERFERON ALFA-2A OR INTERFERON ALFA-2B
     Indication: ASPERGILLUS INFECTION
     Dosage: UNK
  5. OXYGEN. [Suspect]
     Active Substance: OXYGEN
     Indication: ASPERGILLUS INFECTION
     Dosage: UNK
  6. NOXAFIL [Suspect]
     Active Substance: POSACONAZOLE
     Indication: ASPERGILLUS INFECTION
     Dosage: UNK
     Route: 048
  7. VORICONAZOLE. [Suspect]
     Active Substance: VORICONAZOLE
     Indication: ASPERGILLUS INFECTION
     Dosage: UNK
  8. GRANULOCYTE-MACROPHAGE COLONY STIMULATING FACTOR (UNSPECIFIED) [Suspect]
     Active Substance: GRANULOCYTE-MACROPHAGE COLONY-STIMULATING FACTOR
     Indication: ASPERGILLUS INFECTION
     Dosage: UNK

REACTIONS (3)
  - Drug ineffective [Unknown]
  - Cerebral aspergillosis [Not Recovered/Not Resolved]
  - Meningitis aspergillus [Not Recovered/Not Resolved]
